FAERS Safety Report 13075365 (Version 1)
Quarter: 2016Q4

REPORT INFORMATION
  Report Type: Spontaneous
  Country: US (occurrence: US)
  Receive Date: 20161229
  Receipt Date: 20161229
  Transmission Date: 20170207
  Serious: No
  Sender: FDA-Public Use
  Company Number: None

PATIENT
  Age: 67 Year
  Sex: Female
  Weight: 83.08 kg

DRUGS (5)
  1. HEPARIN [Suspect]
     Active Substance: HEPARIN SODIUM
  2. PAIN CREAM [Concomitant]
  3. ASPIRIN 325 [Suspect]
     Active Substance: ASPIRIN
  4. PLAVIX [Suspect]
     Active Substance: CLOPIDOGREL BISULFATE
     Indication: THROMBOSIS
     Dosage: SHOTS IN THE MORNING ONCE A DAY INJECTION
     Dates: end: 20150922
  5. FIN WAE PATCH [Concomitant]

REACTIONS (3)
  - Vaginal haemorrhage [None]
  - Rectal haemorrhage [None]
  - Haemorrhagic stroke [None]

NARRATIVE: CASE EVENT DATE: 2014
